FAERS Safety Report 13672553 (Version 2)
Quarter: 2017Q3

REPORT INFORMATION
  Report Type: Spontaneous
  Country: US (occurrence: US)
  Receive Date: 20170621
  Receipt Date: 20170713
  Transmission Date: 20171127
  Serious: Yes (Hospitalization, Other)
  Sender: FDA-Public Use
  Company Number: US-ASTRAZENECA-2017SE63916

PATIENT
  Age: 25255 Day
  Sex: Male
  Weight: 45.4 kg

DRUGS (1)
  1. BEVESPI AEROSPHERE [Suspect]
     Active Substance: FORMOTEROL FUMARATE\GLYCOPYRROLATE
     Indication: CHRONIC OBSTRUCTIVE PULMONARY DISEASE
     Dosage: 9.0/4.8 MCG 2 PUFFS TWICE PER DAY
     Route: 055
     Dates: start: 20170526, end: 20170609

REACTIONS (3)
  - Supraventricular tachycardia [Unknown]
  - Atrial fibrillation [Recovering/Resolving]
  - Palpitations [Unknown]

NARRATIVE: CASE EVENT DATE: 20170526
